FAERS Safety Report 8282322-X (Version None)
Quarter: 2012Q2

REPORT INFORMATION
  Report Type: 
  Country: None (occurrence: None)
  Receive Date: 20120413
  Receipt Date: 20120413
  Transmission Date: 20120825
  Serious: Yes (Other)
  Sender: FDA-Public Use
  Company Number: None

PATIENT
  Sex: Male
  Weight: 72.574 kg

DRUGS (2)
  1. COMPLERA [Concomitant]
  2. COMPLERA [Suspect]
     Indication: HIV INFECTION
     Dosage: 1 TABLET
     Route: 048
     Dates: start: 20120309, end: 20120412

REACTIONS (2)
  - ABASIA [None]
  - MYELITIS TRANSVERSE [None]
